FAERS Safety Report 6296134-X (Version None)
Quarter: 2009Q3

REPORT INFORMATION
  Report Type: 
  Country: None (occurrence: None)
  Receive Date: 20090731
  Receipt Date: 20090722
  Transmission Date: 20100115
  Serious: Yes (Other)
  Sender: FDA-Public Use
  Company Number: 2009JP004457

PATIENT
  Sex: Female

DRUGS (1)
  1. VESICARE [Suspect]
     Dosage: 5 MG, D, ORAL
     Route: 048
     Dates: start: 20090401

REACTIONS (3)
  - DELUSION [None]
  - DEMENTIA WITH LEWY BODIES [None]
  - HALLUCINATION [None]
